FAERS Safety Report 7944285-3 (Version None)
Quarter: 2011Q4

REPORT INFORMATION
  Report Type: 
  Country: None (occurrence: None)
  Receive Date: 20111129
  Receipt Date: 20111117
  Transmission Date: 20120403
  Serious: No
  Sender: FDA-Public Use
  Company Number: US-BIOGENIDEC-2011BI044052

PATIENT
  Age: 41 Year
  Sex: Female

DRUGS (3)
  1. TYSABRI [Suspect]
     Indication: MULTIPLE SCLEROSIS
     Route: 042
     Dates: start: 20070202, end: 20070312
  2. TYSABRI [Suspect]
     Route: 042
     Dates: start: 20090601
  3. TYSABRI [Suspect]

REACTIONS (7)
  - MALAISE [None]
  - GAIT DISTURBANCE [None]
  - BURNING SENSATION [None]
  - BLINDNESS TRANSIENT [None]
  - CYSTITIS [None]
  - MULTIPLE SCLEROSIS RELAPSE [None]
  - PAIN IN EXTREMITY [None]
